FAERS Safety Report 5045722-7 (Version None)
Quarter: 2006Q3

REPORT INFORMATION
  Report Type: 
  Country: None (occurrence: None)
  Receive Date: 20060710
  Receipt Date: 20060606
  Transmission Date: 20061208
  Serious: Yes (Hospitalization, Other)
  Sender: FDA-Public Use
  Company Number: PHBS2006JP08671

PATIENT
  Age: 78 Year
  Sex: Male

DRUGS (10)
  1. HERBESSOR R [Concomitant]
     Dosage: 1 DF, UNK
     Route: 048
     Dates: end: 20060605
  2. TAMSULOSIN HYDROCHLORIDE [Concomitant]
     Dosage: 0.2 MG, UNK
     Route: 048
  3. FLIVAS [Concomitant]
     Dosage: 25 MG, UNK
     Route: 048
  4. SENNOSIDE [Concomitant]
     Dosage: 4 DF, UNK
     Route: 048
  5. MAGNESIUM OXIDE [Concomitant]
     Dosage: 1 DF, UNK
     Route: 048
  6. CYANOCOBALAMIN [Concomitant]
     Dosage: 1 DF, UNK
     Route: 048
  7. EVIPROSTAT [Concomitant]
     Dosage: 0.2 MG, UNK
     Route: 048
     Dates: end: 20060605
  8. WARFARIN SODIUM [Concomitant]
     Dosage: 25 MG, UNK
     Route: 048
  9. CEROCRAL [Concomitant]
     Dosage: 1 DF, UNK
     Route: 048
     Dates: end: 20060605
  10. LOCHOL [Suspect]
     Indication: HYPERCHOLESTEROLAEMIA
     Dosage: 20 MG/DAY
     Route: 048
     Dates: end: 20060605

REACTIONS (3)
  - ANTINUCLEAR ANTIBODY INCREASED [None]
  - BLOOD SODIUM DECREASED [None]
  - INAPPROPRIATE ANTIDIURETIC HORMONE SECRETION [None]
